FAERS Safety Report 9331605 (Version 2)
Quarter: 2013Q4

REPORT INFORMATION
  Report Type: Report from Study
  Country: ES (occurrence: ES)
  Receive Date: 20130605
  Receipt Date: 20131212
  Transmission Date: 20140711
  Serious: Yes (Death, Other)
  Sender: FDA-Public Use
  Company Number: ES-ROCHE-1232332

PATIENT
  Age: 60 Year
  Sex: Female
  Weight: 61 kg

DRUGS (1)
  1. PERTUZUMAB [Suspect]
     Indication: BREAST CANCER
     Route: 042

REACTIONS (1)
  - Disease progression [Fatal]
